FAERS Safety Report 15488931 (Version 2)
Quarter: 2018Q4

REPORT INFORMATION
  Report Type: Spontaneous
  Country: FR (occurrence: FR)
  Receive Date: 20181011
  Receipt Date: 20181101
  Transmission Date: 20190205
  Serious: Yes (Hospitalization, Other)
  Sender: FDA-Public Use
  Company Number: FR-009507513-1810FRA004126

PATIENT
  Age: 69 Year
  Sex: Female

DRUGS (5)
  1. CEFAZOLINE MYLAN [Suspect]
     Active Substance: CEFAZOLIN SODIUM
     Indication: ENDOCARDITIS
     Dosage: 1 DF, QD
     Route: 042
     Dates: start: 20180725, end: 20180815
  2. CUBICIN [Suspect]
     Active Substance: DAPTOMYCIN
     Indication: ENDOCARDITIS
     Dosage: 1 DF, QD
     Route: 042
     Dates: start: 20180717, end: 20180719
  3. RIFADIN [Suspect]
     Active Substance: RIFAMPIN
     Indication: ENDOCARDITIS
     Dosage: 1 DF, QD
     Route: 042
     Dates: start: 20180722, end: 20180823
  4. GENTAMICINE [Suspect]
     Active Substance: GENTAMICIN
     Indication: ENDOCARDITIS
     Dosage: 1 DF, QD
     Route: 042
     Dates: start: 20180719, end: 20180719
  5. CLOXACILLIN [Suspect]
     Active Substance: CLOXACILLIN
     Indication: ENDOCARDITIS
     Dosage: 1 DF, QD
     Route: 042
     Dates: start: 20180719, end: 20180725

REACTIONS (2)
  - Acute kidney injury [Recovered/Resolved]
  - Nephropathy [Not Recovered/Not Resolved]

NARRATIVE: CASE EVENT DATE: 20180719
